FAERS Safety Report 9393818 (Version 1)
Quarter: 2013Q3

REPORT INFORMATION
  Report Type: Spontaneous
  Country: ES (occurrence: ES)
  Receive Date: 20130710
  Receipt Date: 20130710
  Transmission Date: 20140515
  Serious: Yes (Life-Threatening, Hospitalization, Other)
  Sender: FDA-Public Use
  Company Number: ES-BRISTOL-MYERS SQUIBB COMPANY-19049949

PATIENT
  Age: 55 Year
  Sex: Female

DRUGS (3)
  1. TAXOL [Suspect]
     Dosage: 1DF:6MG/ML
     Dates: start: 20130314, end: 20130314
  2. CARBOPLATIN [Interacting]
     Dates: start: 20130314, end: 20130314
  3. LETROZOLE [Concomitant]

REACTIONS (3)
  - Pneumonitis [Recovering/Resolving]
  - Pancytopenia [Recovering/Resolving]
  - Drug interaction [Unknown]
